FAERS Safety Report 24775186 (Version 1)
Quarter: 2024Q4

REPORT INFORMATION
  Report Type: Spontaneous
  Country: CA (occurrence: CA)
  Receive Date: 20241226
  Receipt Date: 20241226
  Transmission Date: 20250115
  Serious: Yes (Other)
  Sender: TEVA
  Company Number: CA-TEVA-VS-3277876

PATIENT
  Age: 49 Year
  Sex: Female

DRUGS (1)
  1. PACLITAXEL [Suspect]
     Active Substance: PACLITAXEL
     Indication: Product used for unknown indication
     Dosage: DOSE FORM: LIQUID INTRAVENOUS?FREQUENCY- TOTAL
     Route: 065

REACTIONS (7)
  - Tachycardia [Recovered/Resolved]
  - Throat tightness [Recovered/Resolved]
  - Chills [Recovered/Resolved]
  - Throat irritation [Recovered/Resolved]
  - Oxygen therapy [Recovered/Resolved]
  - Nausea [Recovered/Resolved]
  - Vomiting [Recovered/Resolved]
